FAERS Safety Report 16737791 (Version 2)
Quarter: 2019Q3

REPORT INFORMATION
  Report Type: Report from Study
  Country: None (occurrence: US)
  Receive Date: 20190823
  Receipt Date: 20190830
  Transmission Date: 20191005
  Serious: Yes (Other)
  Sender: FDA-Public Use
  Company Number: US-ABBVIE-19K-163-2899608-00

PATIENT
  Age: 68 Year
  Sex: Female
  Weight: 54.48 kg

DRUGS (2)
  1. MAVYRET [Suspect]
     Active Substance: GLECAPREVIR\PIBRENTASVIR
     Indication: CHRONIC HEPATITIS C
     Route: 048
     Dates: start: 20190601, end: 20190807
  2. MAVYRET [Suspect]
     Active Substance: GLECAPREVIR\PIBRENTASVIR
     Indication: HEPATIC CIRRHOSIS
     Route: 048

REACTIONS (10)
  - Loss of personal independence in daily activities [Recovering/Resolving]
  - Dry skin [Recovering/Resolving]
  - Feeling abnormal [Recovering/Resolving]
  - Peripheral swelling [Unknown]
  - Joint swelling [Recovering/Resolving]
  - Insomnia [Not Recovered/Not Resolved]
  - Jaundice [Recovering/Resolving]
  - Unevaluable event [Recovering/Resolving]
  - Unevaluable event [Not Recovered/Not Resolved]
  - Apathy [Not Recovered/Not Resolved]

NARRATIVE: CASE EVENT DATE: 201906
